FAERS Safety Report 9315167 (Version 2)
Quarter: 2013Q2

REPORT INFORMATION
  Report Type: Spontaneous
  Country: US (occurrence: US)
  Receive Date: 20130529
  Receipt Date: 20130626
  Transmission Date: 20140414
  Serious: No
  Sender: FDA-Public Use
  Company Number: US-PFIZER INC-2013163206

PATIENT
  Age: 78 Year
  Sex: Female
  Weight: 64.4 kg

DRUGS (4)
  1. CELEBREX [Suspect]
     Dosage: 200 MG, TWO TIMES A DAY
  2. REMICADE [Suspect]
     Dosage: EVERY TWO MONTHS
     Route: 042
  3. TYLENOL [Suspect]
     Indication: PAIN
     Dosage: 500 MG, TWO OR THREE TIMES A DAY
  4. PREDNISONE [Concomitant]
     Dosage: 5 MG, DAILY

REACTIONS (2)
  - Pain [Not Recovered/Not Resolved]
  - Drug ineffective [Unknown]
